FAERS Safety Report 8614732-2 (Version None)
Quarter: 2012Q3

REPORT INFORMATION
  Report Type: 
  Country: None (occurrence: None)
  Receive Date: 20120809
  Receipt Date: 20120802
  Transmission Date: 20120928
  Serious: Yes (Hospitalization)
  Sender: FDA-Public Use
  Company Number: GB-DEXPHARM-20120963

PATIENT
  Age: 83 Year
  Sex: Male

DRUGS (2)
  1. OMEPRAZOLE [Suspect]
  2. SULFASALAZINE [Suspect]

REACTIONS (3)
  - C-REACTIVE PROTEIN INCREASED [None]
  - HYPONATRAEMIA [None]
  - DERMATITIS EXFOLIATIVE [None]
